FAERS Safety Report 4638894-7 (Version None)
Quarter: 2005Q2

REPORT INFORMATION
  Report Type: 
  Country: None (occurrence: None)
  Receive Date: 20050419
  Receipt Date: 20030217
  Transmission Date: 20051028
  Serious: Yes (Death, Life-Threatening, Hospitalization, Disabling)
  Sender: FDA-Public Use
  Company Number: PHHO2003JP02283

PATIENT
  Age: 69 Year
  Sex: Male
  Weight: 61 kg

DRUGS (10)
  1. CALCITRIOL [Concomitant]
  2. NEORAL [Suspect]
     Indication: RHEUMATOID ARTHRITIS
     Dosage: 150 MG / DAY
     Route: 048
     Dates: start: 20021101, end: 20030216
  3. PREDNISOLONE [Suspect]
     Indication: RHEUMATOID ARTHRITIS
     Dosage: 7.5 MG / DAY
     Route: 048
  4. AMOBAN [Concomitant]
  5. ASPARA-CA [Concomitant]
  6. ADALAT [Concomitant]
  7. ONE-ALPHA [Concomitant]
  8. DEPAS [Concomitant]
  9. LORELCO [Concomitant]
  10. VOLTAREN [Concomitant]

REACTIONS (25)
  - BRAIN STEM SYNDROME [None]
  - CARDIAC ARREST [None]
  - CATHETER PLACEMENT [None]
  - CATHETER RELATED INFECTION [None]
  - CATHETER REMOVAL [None]
  - CEREBRAL ISCHAEMIA [None]
  - COMA [None]
  - COMMUNICATION DISORDER [None]
  - CONJUNCTIVITIS [None]
  - CONVULSION [None]
  - DEATH [None]
  - DYSPHAGIA [None]
  - DYSPNOEA EXERTIONAL [None]
  - ENCEPHALOPATHY [None]
  - INTERSTITIAL LUNG DISEASE [None]
  - LUNG INFILTRATION [None]
  - MUSCLE CONTRACTURE [None]
  - MYOCLONUS [None]
  - PHYSIOTHERAPY [None]
  - PYREXIA [None]
  - RESPIRATORY DISTRESS [None]
  - RESPIRATORY TRACT INFECTION [None]
  - SPEECH REHABILITATION [None]
  - STAPHYLOCOCCAL INFECTION [None]
  - URINARY TRACT INFECTION [None]
